FAERS Safety Report 16140461 (Version 1)
Quarter: 2019Q2

REPORT INFORMATION
  Report Type: Spontaneous
  Country: US (occurrence: US)
  Receive Date: 20190401
  Receipt Date: 20190401
  Transmission Date: 20190711
  Serious: No
  Sender: FDA-Public Use
  Company Number: US-SEPTODONT-201805002

PATIENT
  Sex: Male

DRUGS (1)
  1. LIGNOSPAN STANDARD [Suspect]
     Active Substance: EPINEPHRINE BITARTRATE\LIDOCAINE HYDROCHLORIDE
     Indication: DENTAL LOCAL ANAESTHESIA
     Dosage: IT WAS TAKING HIM ABOUT 5 CARPULES ON ONE PATIENT TO GET NUMB.
     Route: 004
     Dates: start: 2018, end: 2019

REACTIONS (1)
  - Drug ineffective [Recovered/Resolved]

NARRATIVE: CASE EVENT DATE: 2018
